FAERS Safety Report 8554555-6 (Version None)
Quarter: 2012Q3

REPORT INFORMATION
  Report Type: 
  Country: None (occurrence: None)
  Receive Date: 20120731
  Receipt Date: 20120716
  Transmission Date: 20120928
  Serious: No
  Sender: FDA-Public Use
  Company Number: US-ASTRAZENECA-2012SE49335

PATIENT
  Age: 63 Year
  Sex: Female
  Weight: 68.9 kg

DRUGS (3)
  1. NEXIUM [Suspect]
     Indication: GASTROOESOPHAGEAL REFLUX DISEASE
     Route: 048
  2. LISINOPRIL [Concomitant]
  3. NEXIUM [Suspect]
     Indication: OESOPHAGEAL PERFORATION
     Route: 048

REACTIONS (3)
  - BODY HEIGHT DECREASED [None]
  - OFF LABEL USE [None]
  - COUGH [None]
